FAERS Safety Report 21670557 (Version 2)
Quarter: 2022Q4

REPORT INFORMATION
  Report Type: Spontaneous
  Country: US (occurrence: None)
  Receive Date: 20221201
  Receipt Date: 20221215
  Transmission Date: 20230113
  Serious: No
  Sender: FDA-Public Use
  Company Number: US-Encube-000231

PATIENT
  Age: 58 Year
  Sex: Male

DRUGS (12)
  1. DICLOFENAC SODIUM [Suspect]
     Active Substance: DICLOFENAC SODIUM
     Indication: Arthralgia
     Dates: start: 20221101, end: 202211
  2. TACROLIMUS [Concomitant]
     Active Substance: TACROLIMUS
  3. QUINAPRIL [Concomitant]
     Active Substance: QUINAPRIL
  4. PLAVIX [Concomitant]
     Active Substance: CLOPIDOGREL BISULFATE
  5. ROSUVASTATIN [Concomitant]
     Active Substance: ROSUVASTATIN
  6. AMLODIPINE [Concomitant]
     Active Substance: AMLODIPINE BESYLATE
  7. ASPIRIN [Concomitant]
     Active Substance: ASPIRIN
  8. CLOBETASOL [Concomitant]
     Active Substance: CLOBETASOL
  9. COENZYME Q10 [Concomitant]
     Active Substance: DIETARY SUPPLEMENT\UBIDECARENONE
  10. GLUCOSAMINE [Concomitant]
     Active Substance: GLUCOSAMINE
  11. PANTOPRAZOLE [Concomitant]
     Active Substance: PANTOPRAZOLE
  12. TADALAFIL [Concomitant]
     Active Substance: TADALAFIL

REACTIONS (5)
  - Application site pain [Unknown]
  - Rash erythematous [Unknown]
  - Rash vesicular [Unknown]
  - Inappropriate schedule of product administration [Unknown]
  - Application site rash [Not Recovered/Not Resolved]

NARRATIVE: CASE EVENT DATE: 20221101
